FAERS Safety Report 16433040 (Version 1)
Quarter: 2019Q2

REPORT INFORMATION
  Report Type: Report from Study
  Country: US (occurrence: US)
  Receive Date: 20190614
  Receipt Date: 20190614
  Transmission Date: 20190711
  Serious: Yes (Hospitalization, Other)
  Sender: FDA-Public Use
  Company Number: US-BAYER-2019-063231

PATIENT
  Age: 71 Year
  Sex: Female

DRUGS (2)
  1. NEXAVAR [Suspect]
     Active Substance: SORAFENIB
     Indication: HEPATIC CANCER
     Dosage: 400 MG, BID
     Route: 048
     Dates: start: 20190324, end: 20190409
  2. NEXAVAR [Suspect]
     Active Substance: SORAFENIB
     Indication: HEPATIC CANCER
     Dosage: 200 MG, BID
     Route: 048
     Dates: start: 20190514, end: 20190528

REACTIONS (26)
  - Confusional state [Recovering/Resolving]
  - Dry skin [Recovering/Resolving]
  - Asthenia [Unknown]
  - Dehydration [Unknown]
  - Jaundice [Recovering/Resolving]
  - Abdominal pain [Unknown]
  - Blood bilirubin increased [Recovering/Resolving]
  - Muscle spasms [Recovering/Resolving]
  - Diarrhoea [Unknown]
  - Sepsis [Unknown]
  - Oedema peripheral [Recovering/Resolving]
  - Ammonia increased [Unknown]
  - Flatulence [None]
  - Social avoidant behaviour [Recovering/Resolving]
  - Decreased appetite [None]
  - Skin discolouration [Recovering/Resolving]
  - Diarrhoea [None]
  - Confusional state [Unknown]
  - Chromaturia [Recovering/Resolving]
  - Gingival bleeding [Recovering/Resolving]
  - Abdominal pain [Recovering/Resolving]
  - Joint swelling [Recovering/Resolving]
  - Fatigue [Recovering/Resolving]
  - Diarrhoea [Recovering/Resolving]
  - Weight decreased [Not Recovered/Not Resolved]
  - Blood bilirubin increased [Unknown]

NARRATIVE: CASE EVENT DATE: 2019
